FAERS Safety Report 8012119-7 (Version None)
Quarter: 2011Q4

REPORT INFORMATION
  Report Type: 
  Country: None (occurrence: None)
  Receive Date: 20111228
  Receipt Date: 20111223
  Transmission Date: 20120403
  Serious: Yes (Hospitalization)
  Sender: FDA-Public Use
  Company Number: DE-ABBOTT-11P-062-0859288-00

PATIENT
  Sex: Female

DRUGS (2)
  1. HUMIRA [Suspect]
     Indication: PSORIATIC ARTHROPATHY
     Dosage: LONGER THAN EVERY OTHER WEEK
     Route: 058
     Dates: start: 20071201, end: 20111106
  2. HUMIRA [Suspect]
     Dosage: LONGER THAN EVERY OTHER WEEK
     Route: 058
     Dates: start: 20111201

REACTIONS (5)
  - PSORIATIC ARTHROPATHY [None]
  - DECREASED APPETITE [None]
  - VOMITING [None]
  - PREMATURE LABOUR [None]
  - PREMATURE DELIVERY [None]
